FAERS Safety Report 8783090 (Version 2)
Quarter: 2012Q4

REPORT INFORMATION
  Report Type: 
  Country: US (occurrence: US)
  Receive Date: 20120913
  Receipt Date: 20120925
  Transmission Date: 20130627
  Serious: No
  Sender: FDA-Public Use
  Company Number: US-ASTRAZENECA-2012SE70499

PATIENT
  Age: 38 Year
  Sex: Male
  Weight: 95.3 kg

DRUGS (11)
  1. LEXAPRO [Suspect]
     Indication: DEPRESSION
     Route: 048
  2. LEXAPRO [Suspect]
     Indication: DEPRESSION
     Dosage: GENERIC, DAILY
     Route: 048
  3. METOPROLOL SUCCINATE [Suspect]
     Indication: HYPERTENSION
     Route: 048
     Dates: start: 201110
  4. SEROQUEL [Suspect]
     Indication: DEPRESSION
     Route: 048
     Dates: end: 20120820
  5. SEROQUEL [Suspect]
     Indication: SOCIAL PHOBIA
     Route: 048
     Dates: end: 20120820
  6. SEROQUEL [Suspect]
     Indication: DEPRESSION
     Route: 048
     Dates: start: 20120820
  7. SEROQUEL [Suspect]
     Indication: SOCIAL PHOBIA
     Route: 048
     Dates: start: 20120820
  8. SEROQUEL [Suspect]
     Indication: DEPRESSION
     Dosage: GENERIC, DAILY
     Route: 048
  9. SEROQUEL [Suspect]
     Indication: SOCIAL PHOBIA
     Dosage: GENERIC, DAILY
     Route: 048
  10. FENOFIBRATE [Concomitant]
     Indication: BLOOD CHOLESTEROL INCREASED
     Route: 048
  11. PSYCHOTROPIC MED [Concomitant]
     Dates: start: 2005

REACTIONS (9)
  - Blood pressure increased [Unknown]
  - Confusional state [Unknown]
  - Insomnia [Unknown]
  - Restlessness [Unknown]
  - Memory impairment [Unknown]
  - Nasal congestion [Recovered/Resolved]
  - Memory impairment [Unknown]
  - Adverse event [Unknown]
  - Drug ineffective [Not Recovered/Not Resolved]
